FAERS Safety Report 4280107-2 (Version None)
Quarter: 2004Q1

REPORT INFORMATION
  Report Type: 
  Country: None (occurrence: None)
  Receive Date: 20040126
  Receipt Date: 20040113
  Transmission Date: 20041129
  Serious: Yes (Other)
  Sender: FDA-Public Use
  Company Number: 2003118184

PATIENT
  Age: 64 Year
  Sex: Male

DRUGS (17)
  1. NEURONTIN [Suspect]
     Indication: NECK PAIN
     Dosage: 2.4 GRAM (DAILY); ORAL
     Route: 048
     Dates: start: 20030819
  2. CELEBREX [Suspect]
     Indication: PAIN
     Dosage: 400 MG (BID); ORAL
     Route: 048
     Dates: start: 20030704
  3. SINEQUAN [Suspect]
     Indication: NECK PAIN
     Dosage: 30 MG (AT NIGHT); ORAL
     Route: 048
     Dates: start: 20030827
  4. TRAMADOL HCL [Suspect]
     Indication: NECK PAIN
     Dosage: 200 MG (BID); ORAL
     Route: 048
     Dates: start: 20030827
  5. ALL OTHER THERAPEUTIC PRODUCTS [Concomitant]
  6. ALL OTHER THERAPEUTIC PRODUCTS [Concomitant]
  7. ALL OTHER THERAPEUTIC PRODUCTS [Concomitant]
  8. ALL OTHER THERAPEUTIC PRODUCTS [Concomitant]
  9. ALL OTHER THERAPEUTIC PRODUCTS [Concomitant]
  10. ALL OTHER THERAPEUTIC PRODUCTS [Concomitant]
  11. ALL OTHER THERAPEUTIC PRODUCTS [Concomitant]
  12. ALL OTHER THERAPEUTIC PRODUCTS [Concomitant]
  13. ALL OTHER THERAPEUTIC PRODUCTS [Concomitant]
  14. ALL OTHER THERAPEUTIC PRODUCTS [Concomitant]
  15. ALL OTHER THERAPEUTIC PRODUCTS [Concomitant]
  16. ALL OTHER THERAPEUTIC PRODUCTS [Concomitant]
  17. DRUG USED IN DIABETES [Concomitant]

REACTIONS (3)
  - BLOOD GLUCOSE FLUCTUATION [None]
  - CONDITION AGGRAVATED [None]
  - DIABETES MELLITUS [None]
